FAERS Safety Report 4895049-9 (Version None)
Quarter: 2006Q1

REPORT INFORMATION
  Report Type: 
  Country: None (occurrence: None)
  Receive Date: 20060130
  Receipt Date: 20051122
  Transmission Date: 20060701
  Serious: No
  Sender: FDA-Public Use
  Company Number: US-BRISTOL-MYERS SQUIBB COMPANY-13190921

PATIENT
  Age: 44 Year
  Sex: Female

DRUGS (2)
  1. GLUCOPHAGE [Suspect]
     Indication: INSULIN RESISTANCE
     Dates: start: 20051024
  2. REBIF [Suspect]
     Dates: start: 20051022

REACTIONS (4)
  - BLOOD GLUCOSE DECREASED [None]
  - DIZZINESS [None]
  - DYSPNOEA [None]
  - HOT FLUSH [None]
